FAERS Safety Report 6096643-2 (Version None)
Quarter: 2009Q1

REPORT INFORMATION
  Report Type: 
  Country: None (occurrence: None)
  Receive Date: 20090219
  Receipt Date: 20090219
  Transmission Date: 20090719
  Serious: Yes (Other)
  Sender: FDA-Public Use
  Company Number: None

PATIENT
  Age: 65 Year
  Sex: Female
  Weight: 72.5755 kg

DRUGS (2)
  1. ESTRACE [Suspect]
     Dosage: 0.01% AS NEEDED
     Dates: start: 20060101, end: 20080101
  2. LEVOTHYROXINE SODIUM [Suspect]
     Indication: HYPOTHYROIDISM
     Dosage: 25 MCG DAILY
     Dates: start: 20070101, end: 20080101

REACTIONS (6)
  - EMOTIONAL DISTRESS [None]
  - LIP ULCERATION [None]
  - MOUTH ULCERATION [None]
  - PAIN [None]
  - TONGUE DISORDER [None]
  - TONGUE ULCERATION [None]
